FAERS Safety Report 7929058-X (Version None)
Quarter: 2011Q4

REPORT INFORMATION
  Report Type: 
  Country: None (occurrence: None)
  Receive Date: 20111119
  Receipt Date: 20111101
  Transmission Date: 20120403
  Serious: Yes (Other)
  Sender: FDA-Public Use
  Company Number: AU-ASTRAZENECA-2011SE56120

PATIENT
  Sex: Female

DRUGS (4)
  1. SEROQUEL XR [Suspect]
     Route: 048
     Dates: start: 20110801
  2. SEROQUEL XR [Suspect]
     Route: 048
     Dates: start: 20110801, end: 20110916
  3. SEROQUEL XR [Suspect]
     Indication: GENERALISED ANXIETY DISORDER
     Route: 048
  4. SEROQUEL XR [Suspect]
     Route: 048
     Dates: start: 20110919

REACTIONS (2)
  - OFF LABEL USE [None]
  - DRUG WITHDRAWAL SYNDROME [None]
